FAERS Safety Report 12654024 (Version 1)
Quarter: 2016Q3

REPORT INFORMATION
  Report Type: Spontaneous
  Country: AU (occurrence: AU)
  Receive Date: 20160816
  Receipt Date: 20160816
  Transmission Date: 20161109
  Serious: Yes (Other)
  Sender: FDA-Public Use
  Company Number: AU-AMGEN-AUSSP2016097611

PATIENT
  Age: 54 Year
  Sex: Male

DRUGS (5)
  1. ARAVA [Concomitant]
     Active Substance: LEFLUNOMIDE
     Dosage: 20 MG, DAILY
  2. OLMETEC PLUS H [Concomitant]
     Dosage: 40 MG/12.5 MG , 1X/DAY
  3. ENBREL [Suspect]
     Active Substance: ETANERCEPT
     Indication: PRODUCT USED FOR UNKNOWN INDICATION
     Dosage: 50 MG EVERY WEDNESDAY
     Route: 065
     Dates: start: 20160720
  4. NORVASC [Concomitant]
     Active Substance: AMLODIPINE BESYLATE
     Dosage: 5MG TABLET, HALF TABLET DAILY
  5. OROXINE [Concomitant]
     Active Substance: LEVOTHYROXINE SODIUM
     Dosage: 100 MICROGRAM, 1 TAB DAILY ,2 TAB ON SUNDAY

REACTIONS (3)
  - Abdominal pain upper [Unknown]
  - Feeling abnormal [Recovered/Resolved]
  - Gastric infection [Unknown]

NARRATIVE: CASE EVENT DATE: 2016
